FAERS Safety Report 15193008 (Version 1)
Quarter: 2018Q3

REPORT INFORMATION
  Report Type: Report from Study
  Country: ES (occurrence: ES)
  Receive Date: 20180725
  Receipt Date: 20180725
  Transmission Date: 20181010
  Serious: Yes (Hospitalization, Other)
  Sender: FDA-Public Use
  Company Number: ES-TEVA-2018-ES-929771

PATIENT
  Age: 75 Year
  Sex: Male

DRUGS (6)
  1. PREDNISONA [Suspect]
     Active Substance: PREDNISONE
     Indication: CHRONIC OBSTRUCTIVE PULMONARY DISEASE
     Dosage: 10 MILLIGRAM DAILY;
     Route: 048
     Dates: end: 20160810
  2. LORATADINA [Concomitant]
     Active Substance: LORATADINE
     Dosage: 10 MILLIGRAM DAILY;
     Route: 048
     Dates: start: 201406, end: 20160826
  3. PARIET 20 MG COMPRIMIDOS GASTRORRESISTENTES , 28 COMPRIMIDOS [Interacting]
     Active Substance: RABEPRAZOLE SODIUM
     Indication: GASTRITIS PROPHYLAXIS
     Dosage: 20 MILLIGRAM DAILY;
     Route: 048
     Dates: start: 201406
  4. ZITROMAX 250 MG CAPSULAS DURAS, 6 C?PSULAS [Concomitant]
     Active Substance: AZITHROMYCIN
     Indication: CHRONIC OBSTRUCTIVE PULMONARY DISEASE
     Dosage: 250 MILLIGRAM DAILY;
     Route: 048
     Dates: start: 20160209, end: 20160826
  5. ZAMENE 30 MG COMPRIMIDOS, 10 COMPRIMIDOS [Interacting]
     Active Substance: DEFLAZACORT
     Indication: CHRONIC OBSTRUCTIVE PULMONARY DISEASE
     Dosage: 30 MILLIGRAM DAILY;
     Route: 048
     Dates: end: 201607
  6. DIAZEPAM. [Concomitant]
     Active Substance: DIAZEPAM
     Dosage: 10 MILLIGRAM DAILY;
     Route: 048
     Dates: start: 2013, end: 20160826

REACTIONS (2)
  - Drug interaction [Unknown]
  - Osteoporotic fracture [Recovered/Resolved with Sequelae]

NARRATIVE: CASE EVENT DATE: 2016
